FAERS Safety Report 15406407 (Version 2)
Quarter: 2018Q4

REPORT INFORMATION
  Report Type: Spontaneous
  Country: US (occurrence: US)
  Receive Date: 20180920
  Receipt Date: 20181003
  Transmission Date: 20190204
  Serious: No
  Sender: FDA-Public Use
  Company Number: US-PHARMING-PHAUS2018000620

PATIENT

DRUGS (14)
  1. FAMOTIDINE. [Concomitant]
     Active Substance: FAMOTIDINE
  2. OXYCODONE [Concomitant]
     Active Substance: OXYCODONE
  3. HEPARIN [Concomitant]
     Active Substance: HEPARIN SODIUM
  4. LAMOTRIGINE. [Concomitant]
     Active Substance: LAMOTRIGINE
  5. APRISO [Concomitant]
     Active Substance: MESALAMINE
  6. EPINEPHRINE. [Concomitant]
     Active Substance: EPINEPHRINE
  7. RUCONEST [Suspect]
     Active Substance: HUMAN C1-ESTERASE INHIBITOR
     Indication: HEREDITARY ANGIOEDEMA
     Dosage: 3000 IU, AS NEEDED
     Route: 042
     Dates: start: 20170922
  8. SODIUM CHLORIDE. [Concomitant]
     Active Substance: SODIUM CHLORIDE
  9. BACLOFEN. [Concomitant]
     Active Substance: BACLOFEN
  10. NEURONTIN [Concomitant]
     Active Substance: GABAPENTIN
  11. STERILE WATER [Concomitant]
     Active Substance: WATER
  12. PROTONIX [Concomitant]
     Active Substance: PANTOPRAZOLE SODIUM
  13. ZOFRAN [Concomitant]
     Active Substance: ONDANSETRON HYDROCHLORIDE
  14. DICYCLOMINE [Concomitant]
     Active Substance: DICYCLOMINE HYDROCHLORIDE

REACTIONS (2)
  - Tachycardia [Unknown]
  - Hypertension [Unknown]

NARRATIVE: CASE EVENT DATE: 201809
